FAERS Safety Report 6160835-4 (Version None)
Quarter: 2009Q2

REPORT INFORMATION
  Report Type: 
  Country: None (occurrence: None)
  Receive Date: 20090420
  Receipt Date: 20090408
  Transmission Date: 20091009
  Serious: Yes (Hospitalization)
  Sender: FDA-Public Use
  Company Number: DE-ROCHE-621843

PATIENT
  Sex: Female

DRUGS (4)
  1. XELODA [Suspect]
     Route: 048
     Dates: start: 20090310, end: 20090324
  2. AMITRIPTYLINE HCL [Concomitant]
     Indication: DEPRESSION
     Route: 048
  3. ARCOXIA [Concomitant]
     Indication: PAIN
     Route: 048
  4. TARGIN [Concomitant]
     Indication: PAIN
     Dosage: 10 MG OXYCODONE, 5 MG NALOXONE
     Route: 048

REACTIONS (3)
  - ANAEMIA [None]
  - APHASIA [None]
  - CEREBRAL INFARCTION [None]
